FAERS Safety Report 9528884 (Version 2)
Quarter: 2013Q3

REPORT INFORMATION
  Report Type: Spontaneous
  Country: US (occurrence: US)
  Receive Date: 20130917
  Receipt Date: 20130917
  Transmission Date: 20140515
  Serious: No
  Sender: FDA-Public Use
  Company Number: US-BANPHARM-20130523

PATIENT
  Age: 60 Year
  Sex: Female
  Weight: 63.5 kg

DRUGS (2)
  1. ZYRTEC LIQUID GELS 10 MG [Suspect]
     Indication: HYPERSENSITIVITY
     Dosage: 1 DF, BID,
     Route: 048
     Dates: start: 20120915, end: 20120920
  2. PRILOSEC [Concomitant]
     Indication: GASTROOESOPHAGEAL REFLUX DISEASE

REACTIONS (3)
  - Drug ineffective [Unknown]
  - Therapeutic response unexpected with drug substitution [Recovered/Resolved]
  - Inappropriate schedule of drug administration [Unknown]
